FAERS Safety Report 9705302 (Version 1)
Quarter: 2013Q4

REPORT INFORMATION
  Report Type: Spontaneous
  Country: US (occurrence: US)
  Receive Date: 20131122
  Receipt Date: 20131122
  Transmission Date: 20140711
  Serious: Yes (Hospitalization, Other)
  Sender: FDA-Public Use
  Company Number: US-BAYER-2013-142377

PATIENT
  Age: 30 Year
  Sex: Female

DRUGS (7)
  1. YAZ [Suspect]
  2. HYDROCODONE W/APAP [Concomitant]
     Dosage: 5/500 MG
     Route: 048
     Dates: start: 20080318
  3. LIPITOR [Concomitant]
  4. MINOCYCLINE [Concomitant]
  5. FOLIC ACID [Concomitant]
  6. NAPROXEN [Concomitant]
  7. OMEGA-3 FATTY ACIDS [Concomitant]

REACTIONS (3)
  - Deep vein thrombosis [None]
  - Cerebrovascular accident [None]
  - Cerebral artery thrombosis [None]
